FAERS Safety Report 10153248 (Version 2)
Quarter: 2014Q2

REPORT INFORMATION
  Report Type: Spontaneous
  Country: US (occurrence: US)
  Receive Date: 20140505
  Receipt Date: 20140516
  Transmission Date: 20141212
  Serious: Yes (Death)
  Sender: FDA-Public Use
  Company Number: US-BAYER-2014-062915

PATIENT
  Age: 70 Year
  Sex: Male

DRUGS (1)
  1. STIVARGA [Suspect]
     Indication: RECTAL CANCER
     Dosage: 80 MG DAILY FOR 21 DAYS ON, 7
     Route: 048
     Dates: start: 20130701, end: 20131117

REACTIONS (1)
  - Death [Fatal]
